FAERS Safety Report 6386139-2 (Version None)
Quarter: 2009Q4

REPORT INFORMATION
  Report Type: 
  Country: None (occurrence: None)
  Receive Date: 20091002
  Receipt Date: 20081216
  Transmission Date: 20100525
  Serious: No
  Sender: FDA-Public Use
  Company Number: US-ASTRAZENECA-2008UW28128

PATIENT
  Sex: Female
  Weight: 53.1 kg

DRUGS (3)
  1. ARIMIDEX [Suspect]
     Indication: BREAST CANCER
     Route: 048
     Dates: start: 20081201
  2. CELEXA [Concomitant]
  3. AMRIX [Concomitant]

REACTIONS (3)
  - DIZZINESS [None]
  - FEELING ABNORMAL [None]
  - HOT FLUSH [None]
